FAERS Safety Report 4954637-1 (Version None)
Quarter: 2006Q1

REPORT INFORMATION
  Report Type: 
  Country: None (occurrence: None)
  Receive Date: 20060327
  Receipt Date: 20060316
  Transmission Date: 20060701
  Serious: Yes (Hospitalization)
  Sender: FDA-Public Use
  Company Number: FR-ROCHE-440437

PATIENT
  Age: 36 Year
  Sex: Female

DRUGS (6)
  1. DACLIZUMAB [Suspect]
     Route: 065
     Dates: start: 20050705, end: 20050705
  2. DACLIZUMAB [Suspect]
     Route: 065
     Dates: start: 20050719, end: 20050719
  3. MYCOPHENOLATE MOFETIL [Suspect]
     Route: 048
     Dates: start: 20050705
  4. SIROLIMUS [Suspect]
     Route: 048
     Dates: start: 20051003
  5. CYCLOSPORINE [Suspect]
     Route: 065
     Dates: start: 20050705
  6. CORTANCYL [Suspect]
     Route: 048
     Dates: start: 20050705

REACTIONS (2)
  - COMPLICATIONS OF TRANSPLANTED KIDNEY [None]
  - PYELONEPHRITIS [None]
